FAERS Safety Report 8297666-5 (Version None)
Quarter: 2012Q2

REPORT INFORMATION
  Report Type: 
  Country: None (occurrence: None)
  Receive Date: 20120419
  Receipt Date: 20120412
  Transmission Date: 20120825
  Serious: Yes (Other)
  Sender: FDA-Public Use
  Company Number: AU-JNJFOC-20120405959

PATIENT
  Sex: Female

DRUGS (6)
  1. METFORMIN HCL [Concomitant]
     Route: 065
  2. STELARA [Suspect]
     Route: 058
     Dates: start: 20111111, end: 20111111
  3. STELARA [Suspect]
     Route: 058
     Dates: start: 20120203, end: 20120203
  4. OSTELIN [Concomitant]
     Route: 065
  5. STELARA [Suspect]
     Indication: PSORIASIS
     Route: 058
     Dates: start: 20110723, end: 20110723
  6. STELARA [Suspect]
     Route: 058
     Dates: start: 20110820, end: 20110820

REACTIONS (2)
  - MOBILITY DECREASED [None]
  - FALL [None]
